FAERS Safety Report 6543785-0 (Version None)
Quarter: 2010Q1

REPORT INFORMATION
  Report Type: 
  Country: None (occurrence: None)
  Receive Date: 20100120
  Receipt Date: 20091007
  Transmission Date: 20100710
  Serious: No
  Sender: FDA-Public Use
  Company Number: US-BRISTOL-MYERS SQUIBB COMPANY-14798862

PATIENT
  Sex: Male

DRUGS (6)
  1. ERBITUX [Suspect]
     Indication: TONSIL CANCER
     Dates: end: 20061220
  2. ERBITUX [Suspect]
     Indication: LYMPHOMA
     Dates: end: 20061220
  3. CISPLATIN [Suspect]
     Indication: TONSIL CANCER
     Dates: end: 20061220
  4. CISPLATIN [Suspect]
     Indication: LYMPHOMA
     Dates: end: 20061220
  5. RADIATION THERAPY [Suspect]
     Indication: TONSIL CANCER
     Dates: end: 20061220
  6. RADIATION THERAPY [Suspect]
     Indication: LYMPHOMA
     Dates: end: 20061220

REACTIONS (3)
  - DRUG EXPOSURE DURING PREGNANCY [None]
  - NORMAL NEWBORN [None]
  - PREGNANCY [None]
